FAERS Safety Report 4663653-9 (Version None)
Quarter: 2005Q2

REPORT INFORMATION
  Report Type: 
  Country: None (occurrence: None)
  Receive Date: 20050513
  Receipt Date: 20050504
  Transmission Date: 20051028
  Serious: Yes (Other)
  Sender: FDA-Public Use
  Company Number: USA-2005-0018683

PATIENT
  Age: 38 Year
  Sex: Female
  Weight: 77.1 kg

DRUGS (4)
  1. SPECTRACEF [Suspect]
  2. NEURONTIN [Concomitant]
  3. NORCO [Concomitant]
  4. INSULINI (INSULIN) [Concomitant]

REACTIONS (3)
  - DRUG INEFFECTIVE [None]
  - EXTRADURAL ABSCESS [None]
  - POSTOPERATIVE INFECTION [None]
